FAERS Safety Report 15852985 (Version 1)
Quarter: 2019Q1

REPORT INFORMATION
  Report Type: Spontaneous
  Country: US (occurrence: US)
  Receive Date: 20190122
  Receipt Date: 20190122
  Transmission Date: 20190417
  Serious: No
  Sender: FDA-Public Use
  Company Number: US-PERRIGO-18US012817

PATIENT
  Age: 61 Year
  Sex: Male
  Weight: 99.77 kg

DRUGS (1)
  1. IBUPROFEN. [Suspect]
     Active Substance: IBUPROFEN
     Indication: PAIN
     Dosage: 400 TO 600 MG, EVERY 6 HOURS
     Route: 048
     Dates: start: 20181031, end: 20181106

REACTIONS (2)
  - Incorrect dose administered [Unknown]
  - Drug ineffective [Unknown]

NARRATIVE: CASE EVENT DATE: 20181031
